FAERS Safety Report 9973029 (Version 2)
Quarter: 2014Q1

REPORT INFORMATION
  Report Type: Spontaneous
  Country: TR (occurrence: TR)
  Receive Date: 20140306
  Receipt Date: 20140312
  Transmission Date: 20141002
  Serious: Yes (Other)
  Sender: FDA-Public Use
  Company Number: TR-ASTRAZENECA-2014SE14737

PATIENT
  Age: 48 Year
  Sex: Male

DRUGS (6)
  1. BRILINTA [Suspect]
     Indication: CARDIAC DISORDER
     Route: 048
     Dates: start: 20121026, end: 20131023
  2. CORASPIRIN [Concomitant]
     Indication: ISCHAEMIC HEART DISEASE PROPHYLAXIS
     Route: 048
  3. ARIEC [Concomitant]
     Indication: ISCHAEMIC HEART DISEASE PROPHYLAXIS
     Route: 048
  4. GLIFOR [Concomitant]
     Indication: DIABETES MELLITUS
     Route: 048
  5. CRESTOR [Concomitant]
     Indication: CARDIOVASCULAR DISORDER
     Route: 048
  6. NOVONORM [Concomitant]
     Indication: DIABETES MELLITUS
     Route: 048

REACTIONS (1)
  - Myocardial infarction [Recovered/Resolved]
